FAERS Safety Report 8848898 (Version 1)
Quarter: 2012Q4

REPORT INFORMATION
  Report Type: Spontaneous
  Country: US (occurrence: None)
  Receive Date: 20121015
  Receipt Date: 20121015
  Transmission Date: 20130627
  Serious: Yes (Hospitalization, Other)
  Sender: FDA-Public Use
  Company Number: 2012P1060544

PATIENT
  Age: 79 Year
  Sex: Male

DRUGS (14)
  1. METOCLOPRAMIDE [Suspect]
     Indication: GASTROINTESTINAL MOTILITY DISORDER
     Dosage: x 3 doses
     Route: 042
  2. CARBIDOPA-LEVODOPA [Concomitant]
  3. LISINOPRIL [Concomitant]
  4. FUROSEMIDE [Concomitant]
  5. POLYETHYLENEGLYCOL [Concomitant]
  6. ERTAPENEM [Concomitant]
  7. ONDANSETRON [Concomitant]
  8. NEOSTIGMINEL METHYLSULFATE [Concomitant]
  9. GLYCOPYRROLATE [Concomitant]
  10. FAMOTIDINE [Concomitant]
  11. MORPHINE [Concomitant]
  12. METOPROLOL [Concomitant]
  13. INSULIN HUMAN (REGULAR) [Concomitant]
  14. ISOPHANE INSULIN [Suspect]

REACTIONS (3)
  - Encephalopathy [None]
  - Parkinson^s disease [None]
  - Unresponsive to stimuli [None]
